FAERS Safety Report 14234304 (Version 1)
Quarter: 2017Q4

REPORT INFORMATION
  Report Type: Spontaneous
  Country: US (occurrence: US)
  Receive Date: 20171129
  Receipt Date: 20171129
  Transmission Date: 20180321
  Serious: No
  Sender: FDA-Public Use
  Company Number: US-JNJFOC-20170930370

PATIENT
  Age: 17 Month
  Sex: Male

DRUGS (1)
  1. CHILDRENS TYLENOL [Suspect]
     Active Substance: ACETAMINOPHEN
     Indication: PRODUCT USED FOR UNKNOWN INDICATION
     Dosage: 2.5ML ONCE
     Route: 048
     Dates: start: 20170927, end: 20170927

REACTIONS (1)
  - Wrong drug administered [Unknown]

NARRATIVE: CASE EVENT DATE: 20170927
